FAERS Safety Report 7133481-3 (Version None)
Quarter: 2010Q4

REPORT INFORMATION
  Report Type: 
  Country: None (occurrence: None)
  Receive Date: 20101202
  Receipt Date: 20101202
  Transmission Date: 20110411
  Serious: Yes (Hospitalization)
  Sender: FDA-Public Use
  Company Number: JP-ABBOTT-09P-087-0597063-00

PATIENT
  Sex: Female
  Weight: 52.6 kg

DRUGS (10)
  1. HUMIRA [Suspect]
     Indication: JUVENILE ARTHRITIS
     Route: 058
     Dates: start: 20081010, end: 20090828
  2. HUMIRA [Suspect]
     Dates: start: 20090925
  3. METHOTREXATE [Concomitant]
     Indication: JUVENILE ARTHRITIS
     Route: 048
  4. METHOTREXATE [Concomitant]
     Route: 048
     Dates: start: 20090925
  5. IBUPROFEN [Concomitant]
     Indication: JUVENILE ARTHRITIS
     Route: 048
     Dates: start: 20080418
  6. IBUPROFEN [Concomitant]
     Route: 048
     Dates: start: 20090915
  7. FOLIC ACID [Concomitant]
     Indication: FOLATE DEFICIENCY
     Route: 048
  8. FOLIC ACID [Concomitant]
     Indication: PROPHYLAXIS
  9. KETOPROFEN [Concomitant]
     Indication: JUVENILE ARTHRITIS
     Route: 048
     Dates: start: 20081010
  10. KETOPROFEN [Concomitant]
     Dates: start: 20090915

REACTIONS (3)
  - DEHYDRATION [None]
  - OROPHARYNGEAL PAIN [None]
  - PYREXIA [None]
